FAERS Safety Report 25681601 (Version 1)
Quarter: 2025Q3

REPORT INFORMATION
  Report Type: Report from Study
  Country: AU (occurrence: AU)
  Receive Date: 20250814
  Receipt Date: 20250814
  Transmission Date: 20251020
  Serious: Yes (Hospitalization, Other)
  Sender: RANBAXY
  Company Number: AU-SUN PHARMACEUTICAL INDUSTRIES INC-2025RR-522691

PATIENT
  Age: 84 Year
  Sex: Male

DRUGS (3)
  1. BISOPROLOL [Suspect]
     Active Substance: BISOPROLOL
     Indication: Product used for unknown indication
     Route: 065
     Dates: end: 2023
  2. ISOSORBIDE [Suspect]
     Active Substance: ISOSORBIDE
     Indication: Angina pectoris
     Route: 065
     Dates: end: 2017
  3. NITROGLYCERIN [Suspect]
     Active Substance: NITROGLYCERIN
     Route: 065
     Dates: end: 2017

REACTIONS (2)
  - Syncope [Unknown]
  - Hypotension [Unknown]
